FAERS Safety Report 16010303 (Version 1)
Quarter: 2019Q1

REPORT INFORMATION
  Report Type: Spontaneous
  Country: TR (occurrence: TR)
  Receive Date: 20190227
  Receipt Date: 20190227
  Transmission Date: 20190418
  Serious: Yes (Other)
  Sender: FDA-Public Use
  Company Number: TR-009507513-1902TUR009603

PATIENT
  Age: 70 Year
  Sex: Male

DRUGS (5)
  1. MONODOKS [Concomitant]
     Dosage: 100MG;ORAL;2X1
     Route: 048
  2. ENOX (BENZALKONIUM CHLORIDE (+) NORFLOXACIN) [Concomitant]
     Dosage: 0.4 CC;SC;1X1
     Route: 058
  3. UROREC [Concomitant]
     Active Substance: SILODOSIN
     Dosage: 8 MG;ORAL;1X1
     Route: 048
  4. INVANZ [Suspect]
     Active Substance: ERTAPENEM SODIUM
     Indication: URINARY TRACT INFECTION
     Dosage: 1X1
     Route: 042
     Dates: start: 20181127, end: 20181204
  5. PROTONEX [Concomitant]
     Dosage: 40 MG;ORAL;1X1
     Route: 048

REACTIONS (3)
  - Somnolence [Recovered/Resolved]
  - Syncope [Recovered/Resolved]
  - Loss of consciousness [Recovered/Resolved]

NARRATIVE: CASE EVENT DATE: 20181128
